FAERS Safety Report 14908641 (Version 2)
Quarter: 2018Q3

REPORT INFORMATION
  Report Type: Report from Study
  Country: US (occurrence: US)
  Receive Date: 20180517
  Receipt Date: 20180720
  Transmission Date: 20181010
  Serious: Yes (Other)
  Sender: FDA-Public Use
  Company Number: PHEH2018US018451

PATIENT
  Age: 41 Year
  Sex: Female

DRUGS (1)
  1. ENTRESTO [Suspect]
     Active Substance: SACUBITRIL\VALSARTAN
     Indication: PRODUCT USED FOR UNKNOWN INDICATION
     Route: 065

REACTIONS (6)
  - Hyperthyroidism [Unknown]
  - Weight increased [Unknown]
  - Arthralgia [Unknown]
  - Fluid retention [Unknown]
  - Carpal tunnel syndrome [Unknown]
  - Back pain [Unknown]

NARRATIVE: CASE EVENT DATE: 201801
